FAERS Safety Report 15121493 (Version 3)
Quarter: 2019Q1

REPORT INFORMATION
  Report Type: Report from Study
  Country: DE (occurrence: DE)
  Receive Date: 20180709
  Receipt Date: 20190227
  Transmission Date: 20190417
  Serious: Yes (Hospitalization)
  Sender: FDA-Public Use
  Company Number: DE-PFIZER INC-2018269442

PATIENT
  Age: 45 Year
  Sex: Male

DRUGS (12)
  1. AMITRIPTYLINE [Concomitant]
     Active Substance: AMITRIPTYLINE
  2. LEVODOPA [Concomitant]
     Active Substance: LEVODOPA
  3. PALLADON [Concomitant]
     Active Substance: HYDROMORPHONE
  4. RAMIPRIL. [Concomitant]
     Active Substance: RAMIPRIL
  5. PREGABALIN. [Concomitant]
     Active Substance: PREGABALIN
  6. LYRICA [Concomitant]
     Active Substance: PREGABALIN
  7. BISOPROLOL [Concomitant]
     Active Substance: BISOPROLOL
  8. TORASEMIDE [Concomitant]
     Active Substance: TORSEMIDE
  9. NO SUBJECT DRUG [Suspect]
     Active Substance: UNSPECIFIED INGREDIENT
     Dosage: NO DOSE GIVEN
  10. SPIRONOLACTONE. [Concomitant]
     Active Substance: SPIRONOLACTONE
  11. XELJANZ [Suspect]
     Active Substance: TOFACITINIB CITRATE
     Dosage: 5 MG, 2X/DAY
     Dates: end: 20171010
  12. METAMIZOLE [Concomitant]
     Active Substance: METAMIZOLE

REACTIONS (1)
  - Cardiac failure acute [Not Recovered/Not Resolved]

NARRATIVE: CASE EVENT DATE: 20171010
